FAERS Safety Report 8616841-0 (Version None)
Quarter: 2012Q3

REPORT INFORMATION
  Report Type: 
  Country: None (occurrence: None)
  Receive Date: 20120823
  Receipt Date: 20120808
  Transmission Date: 20120928
  Serious: No
  Sender: FDA-Public Use
  Company Number: US-009507513-1208USA004307

PATIENT

DRUGS (3)
  1. NASONEX [Suspect]
     Indication: RHINITIS ALLERGIC
     Route: 045
  2. FLONASE [Concomitant]
     Indication: RHINITIS ALLERGIC
     Dosage: UNK, QD
     Route: 045
  3. VERAMYST [Suspect]
     Indication: RHINITIS ALLERGIC
     Route: 045

REACTIONS (2)
  - GLAUCOMA [None]
  - EYE PAIN [None]
